FAERS Safety Report 24982268 (Version 2)
Quarter: 2025Q2

REPORT INFORMATION
  Report Type: Spontaneous
  Country: IT (occurrence: IT)
  Receive Date: 20250218
  Receipt Date: 20250421
  Transmission Date: 20250716
  Serious: Yes (Hospitalization, Other)
  Sender: ALEXION PHARMACEUTICALS
  Company Number: IT-SA-2025SA045241

PATIENT
  Age: 3 Month

DRUGS (2)
  1. BEYFORTUS [Suspect]
     Active Substance: NIRSEVIMAB-ALIP
     Indication: Prophylaxis
     Route: 065
  2. BEYFORTUS [Suspect]
     Active Substance: NIRSEVIMAB-ALIP
     Route: 065

REACTIONS (6)
  - Respiratory syncytial virus bronchiolitis [Recovered/Resolved]
  - Mycoplasma test positive [Recovered/Resolved]
  - Respiratory syncytial virus bronchiolitis [Recovered/Resolved]
  - Mycoplasma test positive [Unknown]
  - HCoV-OC43 infection [Unknown]
  - Drug ineffective [Unknown]
